FAERS Safety Report 4681177-X (Version None)
Quarter: 2005Q2

REPORT INFORMATION
  Report Type: 
  Country: None (occurrence: None)
  Receive Date: 20050602
  Receipt Date: 20050519
  Transmission Date: 20051028
  Serious: Yes (Other)
  Sender: FDA-Public Use
  Company Number: C-05-0032

PATIENT
  Age: 9 Year
  Sex: Female
  Weight: 41.2773 kg

DRUGS (2)
  1. SELENIUM SULFIDE [Suspect]
     Indication: FUNGAL SKIN INFECTION
     Dosage: APPLY TO WET SCALP FOR 3 MINUTES THEN RINSE.  REPEAT WEEKLY FOR 4 WEEKS
     Dates: start: 20050519
  2. GRISEOFULVIN LIQUID [Concomitant]

REACTIONS (2)
  - HAIR COLOUR CHANGES [None]
  - TRICHORRHEXIS [None]
